FAERS Safety Report 16770566 (Version 1)
Quarter: 2019Q3

REPORT INFORMATION
  Report Type: Spontaneous
  Country: US (occurrence: US)
  Receive Date: 20190715
  Receipt Date: 20190715
  Transmission Date: 20191005
  Serious: No
  Sender: FDA-Public Use
  Company Number: None

PATIENT
  Sex: Female

DRUGS (1)
  1. HARVONI [Suspect]
     Active Substance: LEDIPASVIR\SOFOSBUVIR
     Indication: CHRONIC HEPATITIS C
     Dosage: ?          OTHER DOSE:90/400MG;?
     Route: 048
     Dates: start: 201905

REACTIONS (4)
  - Feeling abnormal [None]
  - Bladder disorder [None]
  - Urinary tract infection [None]
  - Memory impairment [None]
